FAERS Safety Report 16825288 (Version 1)
Quarter: 2019Q3

REPORT INFORMATION
  Report Type: Spontaneous
  Country: US (occurrence: US)
  Receive Date: 20190919
  Receipt Date: 20190919
  Transmission Date: 20191005
  Serious: No
  Sender: FDA-Public Use
  Company Number: US-VIFOR (INTERNATIONAL) INC.-VIT-2019-07856

PATIENT
  Sex: Male

DRUGS (2)
  1. VIBERZI [Concomitant]
     Active Substance: ELUXADOLINE
  2. VELTASSA [Suspect]
     Active Substance: PATIROMER
     Indication: HYPERKALAEMIA
     Route: 048

REACTIONS (2)
  - Faeces hard [Unknown]
  - Blood pressure increased [Unknown]
